FAERS Safety Report 6936376-0 (Version None)
Quarter: 2010Q3

REPORT INFORMATION
  Report Type: 
  Country: None (occurrence: None)
  Receive Date: 20100823
  Receipt Date: 20100812
  Transmission Date: 20110219
  Serious: Yes (Death)
  Sender: FDA-Public Use
  Company Number: GXKR2010DE09040

PATIENT
  Age: 29 Year
  Sex: Female

DRUGS (4)
  1. PREDNISOLONE (NGX) [Suspect]
     Indication: IMMUNOSUPPRESSION
     Dosage: 1 MG/KG, Q48H
     Route: 065
  2. PREDNISOLONE (NGX) [Suspect]
     Dosage: DOSE INCREASED
     Route: 065
  3. PENTOSTATIN [Suspect]
     Indication: IMMUNOSUPPRESSION
     Route: 065
  4. VORICONAZOLE [Suspect]
     Indication: ASPERGILLOSIS
     Dosage: UNK
     Route: 065

REACTIONS (5)
  - LESION EXCISION [None]
  - LUNG INFILTRATION [None]
  - MULTI-ORGAN FAILURE [None]
  - SKIN NECROSIS [None]
  - ZYGOMYCOSIS [None]
